FAERS Safety Report 6284584-7 (Version None)
Quarter: 2009Q3

REPORT INFORMATION
  Report Type: 
  Country: None (occurrence: None)
  Receive Date: 20090723
  Receipt Date: 20090713
  Transmission Date: 20100115
  Serious: Yes (Hospitalization)
  Sender: FDA-Public Use
  Company Number: RENA-1000507

PATIENT
  Age: 78 Year
  Sex: Male

DRUGS (1)
  1. RENVELA [Suspect]
     Indication: HYPERPHOSPHATAEMIA
     Dosage: 0.8 G, QID, ORAL
     Route: 048
     Dates: start: 20090623

REACTIONS (2)
  - CYSTITIS [None]
  - DRUG INEFFECTIVE [None]
